FAERS Safety Report 5840542-5 (Version None)
Quarter: 2008Q3

REPORT INFORMATION
  Report Type: 
  Country: None (occurrence: None)
  Receive Date: 20080811
  Receipt Date: 20080731
  Transmission Date: 20090109
  Serious: Yes (Death, Hospitalization)
  Sender: FDA-Public Use
  Company Number: PH-BAXTER-2008BH008304

PATIENT
  Age: 18 Year
  Sex: Female

DRUGS (1)
  1. DIANEAL [Suspect]
     Indication: PERITONEAL DIALYSIS
     Route: 033
     Dates: start: 20070824, end: 20080701

REACTIONS (3)
  - DYSPNOEA [None]
  - OEDEMA [None]
  - TREATMENT NONCOMPLIANCE [None]
